FAERS Safety Report 9288422 (Version 2)
Quarter: 2013Q3

REPORT INFORMATION
  Report Type: Spontaneous
  Country: IT (occurrence: IT)
  Receive Date: 20130514
  Receipt Date: 20130807
  Transmission Date: 20140515
  Serious: Yes (Hospitalization)
  Sender: FDA-Public Use
  Company Number: IT-MYLANLABS-2013S1009719

PATIENT
  Age: 45 Year
  Sex: Female

DRUGS (2)
  1. LORAZEPAM [Suspect]
     Indication: PRODUCT USED FOR UNKNOWN INDICATION
     Dates: start: 20130313, end: 20130313
  2. TRITTICO [Suspect]
     Indication: PRODUCT USED FOR UNKNOWN INDICATION
     Route: 048
     Dates: start: 20130313, end: 20130313

REACTIONS (2)
  - Drug abuse [Recovering/Resolving]
  - Toxicity to various agents [Recovering/Resolving]
